FAERS Safety Report 7068287 (Version 2)
Quarter: 2014Q3

REPORT INFORMATION
  Report Type: Spontaneous
  Country: US (occurrence: None)
  Receive Date: 20090724
  Receipt Date: 20140915
  Transmission Date: 20150326
  Serious: Yes (Hospitalization, Other)
  Sender: FDA-Public Use
  Company Number: 2009S1005118

PATIENT
  Age: 69 Year
  Sex: Female

DRUGS (14)
  1. AZOR [Concomitant]
     Active Substance: AMLODIPINE BESYLATE\OLMESARTAN MEDOXOMIL
  2. HYDROCHLOROTHIAZIDE (HYDROCHLOROTHIAZIDE) [Concomitant]
     Active Substance: HYDROCHLOROTHIAZIDE
  3. CRESTOR [Concomitant]
     Active Substance: ROSUVASTATIN CALCIUM
  4. COREG [Concomitant]
     Active Substance: CARVEDILOL
  5. PLAVIX (CLOPIDOGREL BISULFATE) [Concomitant]
  6. CELEBREX [Concomitant]
     Active Substance: CELECOXIB
  7. TOPROL (METOPROLOL SUCCINATE) [Concomitant]
  8. CLONIDINE (CLONIDINE) [Concomitant]
     Active Substance: CLONIDINE
  9. HYDRALAZINE (HYDRALAZINE) [Concomitant]
     Active Substance: HYDRALAZINE HYDROCHLORIDE
  10. NEXIUM [Concomitant]
     Active Substance: ESOMEPRAZOLE MAGNESIUM
  11. SODIUM PHOSPHATE, DIBASIC [Suspect]
     Active Substance: SODIUM PHOSPHATE, DIBASIC
     Indication: COLONOSCOPY
     Dosage: 90 ML; TOTAL; PO
     Route: 048
     Dates: start: 20081020, end: 20081021
  12. NIFEDIPINE (NIFEDIPINE) [Concomitant]
  13. ACTOS [Concomitant]
     Active Substance: PIOGLITAZONE HYDROCHLORIDE
  14. L-THYROXINE (LEVOTHYROXINE SODIUM) [Concomitant]

REACTIONS (11)
  - Nephrogenic anaemia [None]
  - Hyperparathyroidism secondary [None]
  - Vomiting [None]
  - Asthenia [None]
  - Hyperphosphataemia [None]
  - Fatigue [None]
  - Renal failure acute [None]
  - Blood potassium decreased [None]
  - Nausea [None]
  - Dehydration [None]
  - Dysgeusia [None]

NARRATIVE: CASE EVENT DATE: 20081104
